FAERS Safety Report 7655699-3 (Version None)
Quarter: 2011Q3

REPORT INFORMATION
  Report Type: 
  Country: None (occurrence: None)
  Receive Date: 20110801
  Receipt Date: 20110718
  Transmission Date: 20111222
  Serious: Yes (Other)
  Sender: FDA-Public Use
  Company Number: AUR-APL-2011-01469

PATIENT
  Age: 67 Year
  Sex: Female

DRUGS (2)
  1. CALCIUM AND VITAMIN D (CALCIUM D3 /01483701/) [Concomitant]
  2. ALENDRONATE SODIUM [Suspect]
     Indication: OSTEOPOROSIS
     Dosage: (70 MG, 1 IN 7 D), ORAL
     Route: 048

REACTIONS (3)
  - ARTHRALGIA [None]
  - FEMUR FRACTURE [None]
  - EXOSTOSIS [None]
